FAERS Safety Report 18113701 (Version 1)
Quarter: 2020Q3

REPORT INFORMATION
  Report Type: Report from Study
  Country: CR (occurrence: CR)
  Receive Date: 20200805
  Receipt Date: 20200805
  Transmission Date: 20201103
  Serious: Yes (Other)
  Sender: FDA-Public Use
  Company Number: NVSC2020CR215574

PATIENT
  Age: 53 Year
  Sex: Male

DRUGS (2)
  1. CO?DIOVAN [Suspect]
     Active Substance: HYDROCHLOROTHIAZIDE\VALSARTAN
     Indication: PRODUCT USED FOR UNKNOWN INDICATION
     Dosage: UNK, 320/25 MG
     Route: 065
     Dates: start: 202002, end: 202003
  2. CO?DIOVAN [Suspect]
     Active Substance: HYDROCHLOROTHIAZIDE\VALSARTAN
     Dosage: UNK, 160/12.5 MG
     Route: 065
     Dates: start: 202003

REACTIONS (6)
  - Blood pressure decreased [Unknown]
  - Malaise [Unknown]
  - Wrong technique in product usage process [Unknown]
  - Single functional kidney [Unknown]
  - Stress [Unknown]
  - Dizziness [Unknown]
